FAERS Safety Report 9466065 (Version 1)
Quarter: 2013Q3

REPORT INFORMATION
  Report Type: Spontaneous
  Country: US (occurrence: US)
  Receive Date: 20130820
  Receipt Date: 20130820
  Transmission Date: 20140515
  Serious: No
  Sender: FDA-Public Use
  Company Number: US-B.I. PHARMACEUTICALS,INC./RIDGEFIELD-2013-BI-24609BP

PATIENT
  Age: 72 Year
  Sex: Female
  Weight: 109 kg

DRUGS (9)
  1. PRADAXA [Suspect]
     Indication: ATRIAL FIBRILLATION
     Dosage: 300 MG
     Route: 048
     Dates: start: 20130712
  2. LOSARTAN [Concomitant]
     Indication: HYPERTENSION
     Dosage: 100 MG
     Route: 048
  3. CITALOPRAM [Concomitant]
     Indication: DEPRESSION
     Dosage: 40 MG
     Route: 048
  4. GLYBURIDE [Concomitant]
     Indication: TYPE 2 DIABETES MELLITUS
     Dosage: 30 MG
     Route: 048
  5. ASPIRIN [Concomitant]
     Dosage: 81 MG
     Route: 048
  6. DILTIAZEM HCL [Concomitant]
     Indication: HYPERTENSION
     Dosage: 360 MG
     Route: 048
  7. ALLOPURINOL [Concomitant]
     Indication: GOUT
     Dosage: 300 MG
     Route: 048
  8. SIMVASTATIN [Concomitant]
     Indication: BLOOD CHOLESTEROL INCREASED
     Dosage: 40 MG
     Route: 048
  9. METOPROLOL TARTRATE [Concomitant]
     Indication: HYPERTENSION
     Dosage: 50 MG
     Route: 048

REACTIONS (1)
  - Oedema peripheral [Not Recovered/Not Resolved]
